FAERS Safety Report 6554983-4 (Version None)
Quarter: 2010Q1

REPORT INFORMATION
  Report Type: 
  Country: None (occurrence: None)
  Receive Date: 20100126
  Receipt Date: 20100126
  Transmission Date: 20100710
  Serious: Yes (Hospitalization)
  Sender: FDA-Public Use
  Company Number: None

PATIENT
  Age: 69 Year
  Sex: Female

DRUGS (2)
  1. VANCOMYCIN [Suspect]
     Indication: CELLULITIS
     Dosage: 1000 MG Q24H IV
     Route: 042
     Dates: start: 20091106, end: 20091121
  2. CEFEPIME [Concomitant]

REACTIONS (1)
  - NEUTROPENIA [None]
